FAERS Safety Report 21143596 (Version 1)
Quarter: 2022Q3

REPORT INFORMATION
  Report Type: Spontaneous
  Country: US (occurrence: None)
  Receive Date: 20220728
  Receipt Date: 20220728
  Transmission Date: 20221027
  Serious: Yes (Other)
  Sender: FDA-Public Use
  Company Number: None

PATIENT
  Age: 57 Year
  Sex: Female
  Weight: 121.5 kg

DRUGS (8)
  1. MAGNESIUM CITRATE [Suspect]
     Active Substance: MAGNESIUM CITRATE
     Indication: Constipation
     Dosage: OTHER QUANTITY : 10 OUNCE(S);?FREQUENCY : AT BEDTIME;?
     Route: 048
  2. PROPAFENONE [Concomitant]
     Active Substance: PROPAFENONE
  3. Spiral lactone [Concomitant]
  4. metro pro lol tartrate [Concomitant]
  5. ATORVASTATIN [Concomitant]
     Active Substance: ATORVASTATIN
  6. ASPIRIN [Concomitant]
     Active Substance: ASPIRIN
  7. VITAMIN D [Concomitant]
     Active Substance: VITAMIN D NOS
  8. OCUVITE [Concomitant]
     Active Substance: VITAMINS

REACTIONS (4)
  - Recalled product administered [None]
  - Defaecation disorder [None]
  - Diarrhoea [None]
  - Fear [None]

NARRATIVE: CASE EVENT DATE: 20220713
